FAERS Safety Report 5366362-6 (Version None)
Quarter: 2007Q2

REPORT INFORMATION
  Report Type: 
  Country: None (occurrence: None)
  Receive Date: 20070622
  Receipt Date: 20070613
  Transmission Date: 20071010
  Serious: Yes (Other)
  Sender: FDA-Public Use
  Company Number: GB-JNJFOC-20070603252

PATIENT
  Sex: Male
  Weight: 77 kg

DRUGS (11)
  1. INFLIXIMAB [Suspect]
     Indication: ANKYLOSING SPONDYLITIS
     Route: 042
  2. PREDNISOLONE [Concomitant]
  3. ASPIRIN [Concomitant]
  4. ATENOLOL [Concomitant]
  5. CALCICHEW [Concomitant]
  6. CO-PROXAMOL [Concomitant]
  7. FERROUS SULFATE TAB [Concomitant]
  8. FOSAMAX [Concomitant]
  9. LOSEC [Concomitant]
  10. SIMVASTATIN [Concomitant]
  11. TRAMADOL HCL [Concomitant]

REACTIONS (1)
  - BLADDER CANCER [None]
